FAERS Safety Report 23293687 (Version 1)
Quarter: 2023Q4

REPORT INFORMATION
  Report Type: Spontaneous
  Country: US (occurrence: US)
  Receive Date: 20231213
  Receipt Date: 20231213
  Transmission Date: 20240109
  Serious: Yes (Other)
  Sender: FDA-Public Use
  Company Number: US-AMGEN-USASP2023220142

PATIENT
  Sex: Female
  Weight: 31.746 kg

DRUGS (1)
  1. PROLIA [Suspect]
     Active Substance: DENOSUMAB
     Indication: Product used for unknown indication
     Dosage: UNK, Q6MO
     Route: 065
     Dates: start: 2018

REACTIONS (2)
  - Atypical femur fracture [Unknown]
  - Blood alkaline phosphatase decreased [Unknown]

NARRATIVE: CASE EVENT DATE: 20230101
